FAERS Safety Report 23643439 (Version 3)
Quarter: 2024Q1

REPORT INFORMATION
  Report Type: Spontaneous
  Country: BR (occurrence: BR)
  Receive Date: 20240318
  Receipt Date: 20240328
  Transmission Date: 20240410
  Serious: Yes (Other)
  Sender: FDA-Public Use
  Company Number: BR-BoehringerIngelheim-2024-BI-014472

PATIENT
  Age: 77 Year
  Sex: Male
  Weight: 55 kg

DRUGS (2)
  1. OFEV [Suspect]
     Active Substance: NINTEDANIB
     Indication: Pulmonary fibrosis
     Route: 048
     Dates: start: 2023, end: 202309
  2. NINTEDANIB ESYLATE [Suspect]
     Active Substance: NINTEDANIB ESYLATE
     Indication: Pulmonary fibrosis
     Route: 048
     Dates: end: 202403

REACTIONS (2)
  - Gastrointestinal carcinoma [Not Recovered/Not Resolved]
  - Weight decreased [Unknown]

NARRATIVE: CASE EVENT DATE: 20230101
